FAERS Safety Report 4708078-2 (Version None)
Quarter: 2005Q3

REPORT INFORMATION
  Report Type: 
  Country: None (occurrence: None)
  Receive Date: 20050707
  Receipt Date: 20050628
  Transmission Date: 20060218
  Serious: Yes (Hospitalization)
  Sender: FDA-Public Use
  Company Number: JP-BOEHRINGER INGELHEIM PHARMACEUTICALS, INC.-2005-BP-11236NB

PATIENT
  Sex: Male
  Weight: 63 kg

DRUGS (8)
  1. BI-SIFROL TABLETS [Suspect]
     Indication: PARKINSON'S DISEASE
     Route: 048
     Dates: start: 20050329, end: 20050405
  2. MADOPAR [Concomitant]
     Indication: PARKINSON'S DISEASE
     Dates: start: 20010101
  3. SYMMETREL [Concomitant]
     Indication: PARKINSON'S DISEASE
     Dates: start: 20010101
  4. MAGLAX [Concomitant]
     Indication: CONSTIPATION
  5. MUCOSTA [Concomitant]
     Indication: GASTRITIS
  6. POLLAKISU [Concomitant]
     Indication: NEUROGENIC BLADDER
  7. LENDORMIN [Concomitant]
     Indication: INSOMNIA
  8. PURSENNID (SENNOSIDE) [Concomitant]
     Indication: CONSTIPATION

REACTIONS (2)
  - DELIRIUM [None]
  - HALLUCINATION [None]
